FAERS Safety Report 7164158-6 (Version None)
Quarter: 2010Q4

REPORT INFORMATION
  Report Type: 
  Country: None (occurrence: None)
  Receive Date: 20101215
  Receipt Date: 20101206
  Transmission Date: 20110411
  Serious: Yes (Other)
  Sender: FDA-Public Use
  Company Number: FR-WATSON-2010-15801

PATIENT
  Age: 47 Year
  Sex: Male

DRUGS (2)
  1. CYCLOPHOSPHAMIDE [Suspect]
     Indication: UVEITIS
     Dosage: 300 MG, DAILY
     Dates: start: 20000701, end: 20020501
  2. CYCLOPHOSPHAMIDE [Suspect]
     Dosage: 200 MG, DAILY
     Dates: start: 19991201, end: 20000701

REACTIONS (1)
  - BEHCET'S SYNDROME [None]
